FAERS Safety Report 6534956-8 (Version None)
Quarter: 2010Q1

REPORT INFORMATION
  Report Type: 
  Country: None (occurrence: None)
  Receive Date: 20100111
  Receipt Date: 20100111
  Transmission Date: 20100710
  Serious: Yes (Hospitalization)
  Sender: FDA-Public Use
  Company Number: None

PATIENT
  Age: 54 Year
  Sex: Male
  Weight: 150.8 kg

DRUGS (2)
  1. PIPERACILLIN AND TAZOBACTAM [Suspect]
     Indication: DIABETIC FOOT
     Dosage: 4/0.5 GM QID IV
     Route: 042
     Dates: start: 20091130, end: 20091207
  2. VANCOMYCIN [Suspect]
     Indication: DIABETIC FOOT
     Dosage: 1500 MG BID IV
     Route: 042
     Dates: start: 20091130, end: 20091210

REACTIONS (2)
  - DRUG LEVEL INCREASED [None]
  - RENAL FAILURE ACUTE [None]
